FAERS Safety Report 6395643-2 (Version None)
Quarter: 2009Q4

REPORT INFORMATION
  Report Type: 
  Country: None (occurrence: None)
  Receive Date: 20091009
  Receipt Date: 20091001
  Transmission Date: 20100525
  Serious: No
  Sender: FDA-Public Use
  Company Number: US-SOLVAY-00209005734

PATIENT
  Age: 67 Year
  Sex: Female
  Weight: 63.636 kg

DRUGS (1)
  1. ANDROGEL [Suspect]
     Indication: ACCIDENTAL EXPOSURE
     Dosage: DAILY DOSE: 7.5 MILLIGRAM(S); VIA PUMP.
     Route: 062
     Dates: start: 20080901

REACTIONS (1)
  - BLOOD TESTOSTERONE INCREASED [None]
